FAERS Safety Report 17769415 (Version 1)
Quarter: 2020Q2

REPORT INFORMATION
  Report Type: Spontaneous
  Country: CA (occurrence: CA)
  Receive Date: 20200512
  Receipt Date: 20200512
  Transmission Date: 20200714
  Serious: Yes (Hospitalization, Other)
  Sender: FDA-Public Use
  Company Number: CA-TEVA-2020-CA-1233124

PATIENT
  Age: 76 Year
  Sex: Male

DRUGS (8)
  1. SILDENAFIL CITRATE. [Suspect]
     Active Substance: SILDENAFIL CITRATE
     Indication: PULMONARY ARTERIAL HYPERTENSION
     Route: 048
  2. VITAMIN B12 [Concomitant]
     Active Substance: CYANOCOBALAMIN
  3. MACITENTAN [Concomitant]
     Active Substance: MACITENTAN
  4. OMEPRAZOLE. [Concomitant]
     Active Substance: OMEPRAZOLE
  5. WARFARIN [Concomitant]
     Active Substance: WARFARIN
  6. FUROSEMIDE. [Concomitant]
     Active Substance: FUROSEMIDE
  7. METOPROLOL. [Concomitant]
     Active Substance: METOPROLOL
  8. TRACLEER [Concomitant]
     Active Substance: BOSENTAN

REACTIONS (8)
  - Dyspnoea exertional [Not Recovered/Not Resolved]
  - Decreased appetite [Not Recovered/Not Resolved]
  - Fatigue [Not Recovered/Not Resolved]
  - Haemoglobin decreased [Not Recovered/Not Resolved]
  - Asthenia [Not Recovered/Not Resolved]
  - Peripheral swelling [Not Recovered/Not Resolved]
  - Cough [Not Recovered/Not Resolved]
  - Hypersomnia [Not Recovered/Not Resolved]
